FAERS Safety Report 21767799 (Version 2)
Quarter: 2023Q1

REPORT INFORMATION
  Report Type: Spontaneous
  Country: JP (occurrence: JP)
  Receive Date: 20221222
  Receipt Date: 20230104
  Transmission Date: 20230417
  Serious: Yes (Hospitalization)
  Sender: FDA-Public Use
  Company Number: JP-PFIZER INC-202201381438

PATIENT
  Age: 8 Decade
  Sex: Male

DRUGS (1)
  1. RHEUMATREX [Suspect]
     Active Substance: METHOTREXATE SODIUM
     Dosage: UNK

REACTIONS (1)
  - Blood disorder [Unknown]
